FAERS Safety Report 7013923-4 (Version None)
Quarter: 2010Q3

REPORT INFORMATION
  Report Type: 
  Country: None (occurrence: None)
  Receive Date: 20100924
  Receipt Date: 20100924
  Transmission Date: 20110219
  Serious: Yes (Other)
  Sender: FDA-Public Use
  Company Number: US-ABBOTT-10P-163-0671190-00

PATIENT
  Age: 79 Year
  Sex: Female

DRUGS (4)
  1. HUMIRA [Suspect]
     Indication: RHEUMATOID ARTHRITIS
     Dosage: THE PATIENT ONLY TOOK TWO INJECTIONS.
     Dates: start: 20100701, end: 20100701
  2. PREDNISONE TAB [Suspect]
     Indication: RHEUMATOID ARTHRITIS
  3. ATIVAN [Concomitant]
     Indication: ANXIETY
  4. COLACE [Concomitant]
     Indication: CONSTIPATION

REACTIONS (10)
  - CONSTIPATION [None]
  - CONTUSION [None]
  - DEHYDRATION [None]
  - ERYTHEMA [None]
  - FRACTURE REDUCTION [None]
  - PAIN [None]
  - PELVIC FRACTURE [None]
  - RASH MACULAR [None]
  - SPINAL FRACTURE [None]
  - SURGERY [None]
